FAERS Safety Report 7902482-7 (Version None)
Quarter: 2011Q4

REPORT INFORMATION
  Report Type: 
  Country: None (occurrence: None)
  Receive Date: 20111108
  Receipt Date: 20100520
  Transmission Date: 20120403
  Serious: No
  Sender: FDA-Public Use
  Company Number: US-BAYER-201023845NA

PATIENT
  Age: 67 Year
  Sex: Female

DRUGS (2)
  1. CLIMARA [Suspect]
     Indication: ATROPHIC VULVOVAGINITIS
     Dosage: 0.1 MG/24HR, UNK
     Route: 062
  2. CLIMARA [Suspect]
     Indication: IRRITABILITY

REACTIONS (1)
  - ABDOMINAL PAIN [None]
